FAERS Safety Report 6525959-8 (Version None)
Quarter: 2010Q1

REPORT INFORMATION
  Report Type: 
  Country: None (occurrence: None)
  Receive Date: 20100104
  Receipt Date: 20091230
  Transmission Date: 20100710
  Serious: Yes (Hospitalization)
  Sender: FDA-Public Use
  Company Number: PHHY2009AU59506

PATIENT
  Sex: Female

DRUGS (1)
  1. EXELON [Suspect]
     Indication: DEMENTIA ALZHEIMER'S TYPE
     Dosage: 5 MM
     Route: 062
     Dates: start: 20081201

REACTIONS (4)
  - HALLUCINATION [None]
  - MALAISE [None]
  - PYREXIA [None]
  - URINARY TRACT INFECTION [None]
